FAERS Safety Report 6912388-8 (Version None)
Quarter: 2010Q3

REPORT INFORMATION
  Report Type: 
  Country: None (occurrence: None)
  Receive Date: 20100806
  Receipt Date: 20080414
  Transmission Date: 20110219
  Serious: No
  Sender: FDA-Public Use
  Company Number: US-PFIZER INC-2008033096

PATIENT
  Sex: Female

DRUGS (2)
  1. DETROL LA [Suspect]
     Indication: MICTURITION URGENCY
  2. PHENAZOPYRIDINE HCL TAB [Concomitant]

REACTIONS (5)
  - CONSTIPATION [None]
  - DEPRESSION [None]
  - DISORIENTATION [None]
  - FEELING ABNORMAL [None]
  - MALAISE [None]
